FAERS Safety Report 8159745-2 (Version None)
Quarter: 2012Q1

REPORT INFORMATION
  Report Type: 
  Country: None (occurrence: None)
  Receive Date: 20120223
  Receipt Date: 20120215
  Transmission Date: 20120608
  Serious: Yes (Other)
  Sender: FDA-Public Use
  Company Number: US-BRISTOL-MYERS SQUIBB COMPANY-16338402

PATIENT
  Age: 63 Year
  Sex: Female
  Weight: 95 kg

DRUGS (1)
  1. ORENCIA [Suspect]
     Indication: RHEUMATOID ARTHRITIS
     Dosage: NEXT INF:21FEB2012
     Route: 042
     Dates: start: 20111228

REACTIONS (2)
  - DRUG INEFFECTIVE [None]
  - BLOOD GLUCOSE INCREASED [None]
